FAERS Safety Report 20077249 (Version 1)
Quarter: 2021Q4

REPORT INFORMATION
  Report Type: Spontaneous
  Country: US (occurrence: None)
  Receive Date: 20211116
  Receipt Date: 20211116
  Transmission Date: 20220303
  Serious: No
  Sender: FDA-Public Use
  Company Number: 2021A796471

PATIENT
  Age: 876 Month
  Sex: Female
  Weight: 68 kg

DRUGS (2)
  1. BYDUREON BCISE [Suspect]
     Active Substance: EXENATIDE
     Indication: Type 2 diabetes mellitus
     Dosage: 2MG/ML ONCE A WEEK
     Route: 058
  2. BYETTA [Suspect]
     Active Substance: EXENATIDE
     Indication: Type 2 diabetes mellitus
     Route: 058

REACTIONS (8)
  - Limb injury [Unknown]
  - Arthralgia [Unknown]
  - Fall [Unknown]
  - Joint injury [Unknown]
  - Abdominal discomfort [Unknown]
  - Incorrect dose administered by device [Unknown]
  - Intentional device misuse [Unknown]
  - Device leakage [Unknown]

NARRATIVE: CASE EVENT DATE: 20210401
